FAERS Safety Report 6985044 (Version 4)
Quarter: 2018Q2

REPORT INFORMATION
  Report Type: Spontaneous
  Country: IT (occurrence: IT)
  Receive Date: 20090504
  Receipt Date: 20180619
  Transmission Date: 20180711
  Serious: Yes (Life-Threatening, Hospitalization, Other)
  Sender: FDA-Public Use
  Company Number: IT-JNJFOC-20090406611

PATIENT
  Age: 5 Year
  Sex: Female
  Weight: 19.4 kg

DRUGS (5)
  1. IBUPROFEN. [Suspect]
     Active Substance: IBUPROFEN
     Indication: PYREXIA
     Dosage: 5 MG/KG, TID (THREE TOTAL DOSES); AS REQUIRED
     Route: 048
  2. ACETAMINOPHEN. [Suspect]
     Active Substance: ACETAMINOPHEN
     Route: 048
  3. DIAZEPAM. [Suspect]
     Active Substance: DIAZEPAM
     Indication: FEBRILE CONVULSION
     Route: 054
  4. ACETAMINOPHEN. [Suspect]
     Active Substance: ACETAMINOPHEN
     Indication: PYREXIA
     Dosage: 5 MG/KG/DOSE TOTAL OF 2 DOSES
     Route: 048
  5. ORAL REHYDRATION SALT [Concomitant]
     Indication: DEHYDRATION
     Route: 048

REACTIONS (21)
  - Red blood cell sedimentation rate increased [Recovered/Resolved]
  - Drug interaction [Recovered/Resolved]
  - Acute kidney injury [Recovered/Resolved]
  - Base excess [Recovered/Resolved]
  - Hypertension [Recovered/Resolved]
  - C-reactive protein increased [Recovered/Resolved]
  - Acute hepatic failure [Recovered/Resolved]
  - Blood creatinine increased [Recovered/Resolved]
  - Renal impairment [Recovered/Resolved]
  - Fibrin D dimer increased [Recovered/Resolved]
  - Blood sodium decreased [Recovered/Resolved]
  - Blood immunoglobulin G increased [Recovered/Resolved]
  - Hepatitis cholestatic [Recovered/Resolved]
  - Alpha 1 microglobulin increased [Recovered/Resolved]
  - Kidney enlargement [Recovered/Resolved]
  - Blood albumin decreased [Recovered/Resolved]
  - Blood urea increased [Recovered/Resolved]
  - Blood fibrinogen increased [Recovered/Resolved]
  - Hepatic enzyme increased [Recovered/Resolved]
  - Gamma-glutamyltransferase increased [Recovered/Resolved]
  - Platelet count increased [Recovered/Resolved]
